FAERS Safety Report 25688953 (Version 2)
Quarter: 2025Q3

REPORT INFORMATION
  Report Type: Spontaneous
  Country: US (occurrence: US)
  Receive Date: 20250818
  Receipt Date: 20250908
  Transmission Date: 20251020
  Serious: No
  Sender: ELI LILLY AND COMPANY
  Company Number: US-ELI_LILLY_AND_COMPANY-US202508010999

PATIENT
  Age: 83 Year
  Sex: Female

DRUGS (9)
  1. KISUNLA [Suspect]
     Active Substance: DONANEMAB-AZBT
     Indication: Cognitive disorder
     Dosage: UNK, UNKNOWN MONTHLY (1ST INFUSION)
     Route: 065
     Dates: start: 20250619
  2. KISUNLA [Suspect]
     Active Substance: DONANEMAB-AZBT
     Route: 065
     Dates: start: 202507
  3. RIVASTIGMINE [Concomitant]
     Active Substance: RIVASTIGMINE
     Indication: Memory impairment
     Route: 065
     Dates: start: 20241108
  4. FLUTICASONE [Concomitant]
     Active Substance: FLUTICASONE
     Indication: Sinus disorder
     Route: 065
     Dates: start: 20250114
  5. LOSARTAN [Concomitant]
     Active Substance: LOSARTAN
     Indication: Hypertension
  6. AMITRIPTYLINE [Concomitant]
     Active Substance: AMITRIPTYLINE
     Indication: Sleep disorder
     Route: 065
     Dates: start: 20230112
  7. AMLODIPINE [Concomitant]
     Active Substance: AMLODIPINE BESYLATE
     Indication: Hypertension
     Dates: start: 20120124
  8. ALENDRONATE [Concomitant]
     Active Substance: ALENDRONATE SODIUM
     Indication: Bone density abnormal
     Dates: start: 20240111
  9. IRON [Concomitant]
     Active Substance: IRON
     Indication: Blood iron decreased
     Route: 065
     Dates: start: 20250204

REACTIONS (4)
  - Dizziness [Not Recovered/Not Resolved]
  - Asthenia [Not Recovered/Not Resolved]
  - Fatigue [Not Recovered/Not Resolved]
  - Nausea [Not Recovered/Not Resolved]

NARRATIVE: CASE EVENT DATE: 20250701
